FAERS Safety Report 18082498 (Version 3)
Quarter: 2020Q3

REPORT INFORMATION
  Report Type: Spontaneous
  Country: IT (occurrence: IT)
  Receive Date: 20200728
  Receipt Date: 20200816
  Transmission Date: 20201103
  Serious: Yes (Death, Hospitalization, Other)
  Sender: FDA-Public Use
  Company Number: NVSC2020IT210072

PATIENT
  Age: 18 Year
  Sex: Female

DRUGS (10)
  1. ACETYLSALICYLIC ACID [Suspect]
     Active Substance: ASPIRIN
     Indication: AORTIC STENOSIS
     Dosage: 50 MG, QD
     Route: 065
  2. FUROSEMIDE. [Suspect]
     Active Substance: FUROSEMIDE
     Indication: ANGINA PECTORIS
  3. METOLAZONE. [Suspect]
     Active Substance: METOLAZONE
     Indication: ANGINA PECTORIS
  4. SPIRONOLACTONE. [Suspect]
     Active Substance: SPIRONOLACTONE
     Indication: AORTIC STENOSIS
     Dosage: 10 MG, QD
     Route: 065
  5. ACETYLSALICYLIC ACID [Suspect]
     Active Substance: ASPIRIN
     Indication: ANGINA PECTORIS
  6. METOLAZONE. [Suspect]
     Active Substance: METOLAZONE
     Indication: AORTIC STENOSIS
     Dosage: 0.25 MG, QD
     Route: 065
  7. CARVEDILOL. [Suspect]
     Active Substance: CARVEDILOL
     Indication: AORTIC STENOSIS
     Dosage: 6.25 MG, QD
     Route: 065
  8. CARVEDILOL. [Suspect]
     Active Substance: CARVEDILOL
     Indication: ANGINA PECTORIS
     Dosage: 6.25 MILLIGRAM DAILY;
     Route: 065
  9. FUROSEMIDE. [Suspect]
     Active Substance: FUROSEMIDE
     Indication: AORTIC STENOSIS
     Dosage: 37.5 MG, QD
     Route: 065
  10. SPIRONOLACTONE. [Suspect]
     Active Substance: SPIRONOLACTONE
     Indication: ANGINA PECTORIS

REACTIONS (12)
  - Ventricular hypokinesia [Unknown]
  - Angina pectoris [Recovering/Resolving]
  - Product use in unapproved indication [Unknown]
  - Peripheral swelling [Unknown]
  - Hepatomegaly [Unknown]
  - Dyspnoea at rest [Unknown]
  - Drug ineffective [Unknown]
  - Cough [Unknown]
  - Sinus tachycardia [Unknown]
  - Angina unstable [Fatal]
  - Aortic stenosis [Unknown]
  - Jugular vein distension [Unknown]
